FAERS Safety Report 10300124 (Version 6)
Quarter: 2014Q4

REPORT INFORMATION
  Report Type: Report from Study
  Country: US (occurrence: US)
  Receive Date: 20140711
  Receipt Date: 20141120
  Transmission Date: 20150528
  Serious: Yes (Disabling)
  Sender: FDA-Public Use
  Company Number: US-GLAXOSMITHKLINE-Z0022938A

PATIENT
  Age: 54 Year
  Sex: Female
  Weight: 89.5 kg

DRUGS (5)
  1. DABRAFENIB [Suspect]
     Active Substance: DABRAFENIB
     Indication: COLORECTAL CANCER
     Dosage: 100 MG, BID
     Route: 048
     Dates: start: 20140405, end: 20140420
  2. DABRAFENIB [Suspect]
     Active Substance: DABRAFENIB
     Dosage: 50 MG, BID
     Route: 048
     Dates: start: 20140620, end: 20140624
  3. PANITUMUMAB [Concomitant]
     Active Substance: PANITUMUMAB
     Indication: CHEMOTHERAPY
     Dosage: UNK, U
     Dates: start: 201312
  4. AVASTIN [Concomitant]
     Active Substance: BEVACIZUMAB
     Indication: CHEMOTHERAPY
     Dosage: UNK, U
  5. DABRAFENIB [Suspect]
     Active Substance: DABRAFENIB
     Dosage: UNK, VA
     Route: 048
     Dates: start: 20140421, end: 20140619

REACTIONS (1)
  - Alveolitis allergic [Not Recovered/Not Resolved]

NARRATIVE: CASE EVENT DATE: 20140630
